FAERS Safety Report 9898807 (Version 1)
Quarter: 2014Q1

REPORT INFORMATION
  Report Type: Spontaneous
  Country: US (occurrence: US)
  Receive Date: 20140214
  Receipt Date: 20140214
  Transmission Date: 20141002
  Serious: No
  Sender: FDA-Public Use
  Company Number: US-LUNDBECK-DKLU1096712

PATIENT
  Sex: Female

DRUGS (1)
  1. ONFI [Suspect]
     Indication: EPILEPSY
     Route: 048
     Dates: start: 2013, end: 2013

REACTIONS (1)
  - Drug ineffective [Unknown]
